FAERS Safety Report 8380201-0 (Version None)
Quarter: 2012Q2

REPORT INFORMATION
  Report Type: 
  Country: None (occurrence: None)
  Receive Date: 20120523
  Receipt Date: 20120514
  Transmission Date: 20120825
  Serious: Yes (Hospitalization, Disabling, Other)
  Sender: FDA-Public Use
  Company Number: US-ASTRAZENECA-2009UW07971

PATIENT
  Age: 53 Year
  Sex: Male

DRUGS (2)
  1. NEXIUM [Suspect]
     Route: 048
  2. PRILOSEC OTC [Suspect]
     Route: 048

REACTIONS (13)
  - INTERVERTEBRAL DISC PROTRUSION [None]
  - MUSCLE SPASMS [None]
  - ADVERSE EVENT [None]
  - DRUG INEFFECTIVE [None]
  - APHAGIA [None]
  - DIARRHOEA [None]
  - PAIN [None]
  - INSOMNIA [None]
  - DIVERTICULITIS [None]
  - GASTRIC DISORDER [None]
  - MALAISE [None]
  - ABDOMINAL DISCOMFORT [None]
  - INTENTIONAL DRUG MISUSE [None]
